FAERS Safety Report 4365168-4 (Version None)
Quarter: 2004Q2

REPORT INFORMATION
  Report Type: 
  Country: None (occurrence: None)
  Receive Date: 20040521
  Receipt Date: 20040510
  Transmission Date: 20050107
  Serious: Yes (Death)
  Sender: FDA-Public Use
  Company Number: F01200401051

PATIENT
  Age: 65 Year
  Sex: Female

DRUGS (4)
  1. OXALIPLATIN - SOLUTION [Suspect]
     Indication: COLORECTAL CANCER
     Route: 042
     Dates: start: 20040430, end: 20040430
  2. CAPECITABINE - TABLET [Suspect]
     Route: 048
     Dates: start: 20040330, end: 20040430
  3. LANSOPRAZOLE [Concomitant]
  4. THYROXINE (LEVOTHYROXINE) [Concomitant]

REACTIONS (4)
  - DIARRHOEA [None]
  - HYPOTENSION [None]
  - METABOLIC ACIDOSIS [None]
  - PULMONARY EMBOLISM [None]
